FAERS Safety Report 15214532 (Version 1)
Quarter: 2018Q3

REPORT INFORMATION
  Report Type: Report from Study
  Country: CN (occurrence: CN)
  Receive Date: 20180730
  Receipt Date: 20180730
  Transmission Date: 20181010
  Serious: Yes (Hospitalization, Other)
  Sender: FDA-Public Use
  Company Number: CN-SA-2018SA196627

PATIENT
  Age: 26 Year
  Sex: Male
  Weight: 60 kg

DRUGS (7)
  1. MYCOPHENOLATE SODIUM [Concomitant]
     Active Substance: MYCOPHENOLATE SODIUM
     Dosage: 360 UNK
     Route: 048
  2. MIZORIBINE [Concomitant]
     Active Substance: MIZORIBINE
     Dosage: UNK
  3. ANTI?THYMOCYTE GLOBULIN (RABBIT) NOS [Suspect]
     Active Substance: LAPINE T-LYMPHOCYTE IMMUNE GLOBULIN
     Dosage: 50 MG, QD
     Dates: start: 20140509, end: 20140511
  4. METHYLPREDNISOLONE. [Concomitant]
     Active Substance: METHYLPREDNISOLONE
     Dosage: 500G+250MG*2D
     Dates: start: 20140723
  5. ASPIRINE [Concomitant]
     Active Substance: ASPIRIN
  6. MSC 2490484A [Concomitant]
     Dosage: UNK
     Route: 042
     Dates: start: 20140709
  7. SULPERAZON [Concomitant]
     Active Substance: CEFOPERAZONE SODIUM\SULBACTAM SODIUM
     Indication: INFECTION

REACTIONS (3)
  - Urinary tract infection [Recovered/Resolved]
  - Delayed graft function [Recovered/Resolved]
  - Kidney transplant rejection [Recovered/Resolved]

NARRATIVE: CASE EVENT DATE: 20140512
